FAERS Safety Report 20555073 (Version 1)
Quarter: 2022Q1

REPORT INFORMATION
  Report Type: Report from Study
  Country: US (occurrence: None)
  Receive Date: 20220304
  Receipt Date: 20220304
  Transmission Date: 20220423
  Serious: Yes (Death, Hospitalization)
  Sender: FDA-Public Use
  Company Number: US-ROCHE-3040481

PATIENT
  Age: 61 Year
  Sex: Male
  Weight: 71 kg

DRUGS (3)
  1. VENETOCLAX [Suspect]
     Active Substance: VENETOCLAX
     Indication: Chronic lymphocytic leukaemia
     Dosage: ON 25/JAN/2022, LAST DOSE WAS ADMINISTERED PRIOR TO AE.
     Route: 048
     Dates: start: 20210503
  2. OBINUTUZUMAB [Suspect]
     Active Substance: OBINUTUZUMAB
     Indication: Chronic lymphocytic leukaemia
     Dosage: ON 07/OCT/2021, LAST DOSE WAS ADMINISTERED PRIOR TO AE.
     Route: 042
     Dates: start: 20210503
  3. IBRUTINIB [Suspect]
     Active Substance: IBRUTINIB
     Indication: Chronic lymphocytic leukaemia
     Dosage: ON 25/JAN/2022, LAST DOSE WAS ADMINISTERED PRIOR TO AE.
     Route: 048
     Dates: start: 20210503

REACTIONS (2)
  - COVID-19 pneumonia [Fatal]
  - Aspiration [Unknown]

NARRATIVE: CASE EVENT DATE: 20220126
